FAERS Safety Report 9316655 (Version 1)
Quarter: 2013Q2

REPORT INFORMATION
  Report Type: Spontaneous
  Country: US (occurrence: US)
  Receive Date: 20130530
  Receipt Date: 20130530
  Transmission Date: 20140414
  Serious: Yes (Hospitalization, Other)
  Sender: FDA-Public Use
  Company Number: US-ASTELLAS-2013US003717

PATIENT
  Age: 72 Year
  Sex: Male

DRUGS (1)
  1. VESICARE [Suspect]
     Indication: URINARY INCONTINENCE
     Dosage: 10 MG, UID/QD
     Route: 048

REACTIONS (3)
  - Pneumonia [Recovering/Resolving]
  - Bronchiectasis [Unknown]
  - Prostatic specific antigen increased [Unknown]
